FAERS Safety Report 5717331-5 (Version None)
Quarter: 2008Q2

REPORT INFORMATION
  Report Type: 
  Country: None (occurrence: None)
  Receive Date: 20080424
  Receipt Date: 20080424
  Transmission Date: 20081010
  Serious: Yes (Other)
  Sender: FDA-Public Use
  Company Number: None

PATIENT
  Sex: Female
  Weight: 61.2356 kg

DRUGS (1)
  1. RITUXAMAB 1000MG [Suspect]
     Indication: JUVENILE ARTHRITIS
     Dosage: 1000MG Q 4-6 MONTHS IV DRIP
     Route: 041
     Dates: start: 20080327, end: 20080410

REACTIONS (5)
  - DIARRHOEA [None]
  - MOUTH ULCERATION [None]
  - MUCOSAL INFLAMMATION [None]
  - NASAL ULCER [None]
  - NAUSEA [None]
